FAERS Safety Report 5554294-X (Version None)
Quarter: 2007Q4

REPORT INFORMATION
  Report Type: 
  Country: None (occurrence: None)
  Receive Date: 20071213
  Receipt Date: 20071207
  Transmission Date: 20080405
  Serious: Yes (Hospitalization)
  Sender: FDA-Public Use
  Company Number: B0499458A

PATIENT
  Age: 27 Year
  Sex: Female

DRUGS (3)
  1. AUGMENTIN '125' [Suspect]
     Dosage: 2MG PER DAY
     Route: 048
     Dates: start: 20071122, end: 20071126
  2. TRIPROLIDINE + PSEUDOEPHEDRINE [Suspect]
     Indication: UPPER RESPIRATORY TRACT INFECTION
     Route: 048
  3. OKI [Suspect]
     Indication: HEADACHE
     Dosage: 60DROP PER DAY
     Route: 048
     Dates: start: 20071126, end: 20071126

REACTIONS (3)
  - DIZZINESS [None]
  - ERYTHEMA [None]
  - MUSCLE SPASMS [None]
